FAERS Safety Report 15538371 (Version 3)
Quarter: 2023Q2

REPORT INFORMATION
  Report Type: Spontaneous
  Country: DE (occurrence: DE)
  Receive Date: 20181022
  Receipt Date: 20230404
  Transmission Date: 20230721
  Serious: Yes (Life-Threatening, Other)
  Sender: FDA-Public Use
  Company Number: DE-EMA-DD-20180528-KUMARNVEVHP-115101

PATIENT
  Age: 19 Year
  Sex: Male

DRUGS (4)
  1. ETOPOSIDE [Suspect]
     Active Substance: ETOPOSIDE
     Indication: Synovial sarcoma
     Dosage: 1 DF (2 X 25 MG/M2), UNK
     Route: 048
  2. GEMCITABINE [Suspect]
     Active Substance: GEMCITABINE
     Indication: Synovial sarcoma
     Dosage: 800 MG/M2, UNK
     Route: 042
  3. ICLUSIG [Suspect]
     Active Substance: PONATINIB
     Indication: Synovial sarcoma
     Dosage: 30 MG, UNK
     Route: 048
  4. GEFITINIB [Suspect]
     Active Substance: GEFITINIB
     Indication: Synovial sarcoma
     Dosage: 250 MG, UNK
     Route: 048

REACTIONS (10)
  - Neutropenia [Unknown]
  - Malignant neoplasm progression [Unknown]
  - Pericardial effusion [Unknown]
  - Anaemia [Unknown]
  - Thrombocytopenia [Unknown]
  - Lymphopenia [Unknown]
  - Off label use [Unknown]
  - Pleural effusion [Unknown]
  - Cough [Unknown]
  - Product use in unapproved indication [Unknown]
